FAERS Safety Report 13339192 (Version 1)
Quarter: 2017Q1

REPORT INFORMATION
  Report Type: Spontaneous
  Country: GB (occurrence: GB)
  Receive Date: 20170315
  Receipt Date: 20170315
  Transmission Date: 20170428
  Serious: Yes (Other)
  Sender: FDA-Public Use
  Company Number: GB-TEVA-749217ACC

PATIENT
  Age: 38 Year
  Sex: Female
  Weight: 74 kg

DRUGS (5)
  1. FLUCLOXACILLIN [Concomitant]
     Active Substance: FLUCLOXACILLIN
     Dates: start: 20161201, end: 20161208
  2. PROCHLORPERAZINE. [Concomitant]
     Active Substance: PROCHLORPERAZINE
     Dosage: 1 OR 2 TO BE TAKEN THREE TIMES DAILY
     Dates: start: 20161220, end: 20161228
  3. ZOPICLONE [Concomitant]
     Active Substance: ZOPICLONE
     Dosage: TAKE ONE AT NIGHT WHEN REQUIRED
     Dates: start: 20170207, end: 20170227
  4. SERTRALINE [Concomitant]
     Active Substance: SERTRALINE HYDROCHLORIDE
     Dosage: HALF TABLET DAILY FOR 2 DAYS, THEN ONE IN THE MORNING.
     Dates: start: 20170214, end: 20170215
  5. DIAZEPAM. [Suspect]
     Active Substance: DIAZEPAM
     Dates: start: 20170227

REACTIONS (5)
  - Aggression [Recovering/Resolving]
  - Restlessness [Recovering/Resolving]
  - Hyperhidrosis [Recovering/Resolving]
  - Agitation [Recovering/Resolving]
  - Mydriasis [Recovering/Resolving]

NARRATIVE: CASE EVENT DATE: 20170227
